FAERS Safety Report 16391693 (Version 1)
Quarter: 2019Q2

REPORT INFORMATION
  Report Type: Spontaneous
  Country: NL (occurrence: NL)
  Receive Date: 20190605
  Receipt Date: 20190605
  Transmission Date: 20190711
  Serious: Yes (Hospitalization)
  Sender: FDA-Public Use
  Company Number: NL-ACCORD-130945

PATIENT
  Age: 73 Year
  Sex: Female
  Weight: 85 kg

DRUGS (1)
  1. BENDAMUSTINE/BENDAMUSTINE HYDROCHLORIDE [Suspect]
     Active Substance: BENDAMUSTINE HYDROCHLORIDE
     Indication: CHRONIC LYMPHOCYTIC LEUKAEMIA
     Dosage: STRENGTH: 100 MG, POWDER FOR INFUSION, 100 MG / M2 BODY SURFACE AREA ON DAY 1. 2. CYCLE IN 4 WEEKS
     Dates: start: 20180807, end: 20180916

REACTIONS (3)
  - Eyelid oedema [Recovered/Resolved with Sequelae]
  - Chills [Recovered/Resolved with Sequelae]
  - Swelling face [Recovered/Resolved with Sequelae]

NARRATIVE: CASE EVENT DATE: 20180918
